FAERS Safety Report 13681301 (Version 8)
Quarter: 2018Q1

REPORT INFORMATION
  Report Type: Spontaneous
  Country: US (occurrence: US)
  Receive Date: 20170623
  Receipt Date: 20180112
  Transmission Date: 20180508
  Serious: No
  Sender: FDA-Public Use
  Company Number: US-PFIZER INC-2017273055

PATIENT
  Age: 82 Year
  Sex: Male
  Weight: 93 kg

DRUGS (23)
  1. LYRICA [Suspect]
     Active Substance: PREGABALIN
     Dosage: 75 MG, 2X/DAY (ONE IN AM AND ONE IN PM)
     Route: 048
     Dates: start: 201702
  2. PRAVASTATIN. [Concomitant]
     Active Substance: PRAVASTATIN
     Indication: TYPE 2 DIABETES MELLITUS
     Dosage: 40 MG, ONCE A DAY
  3. LYRICA [Suspect]
     Active Substance: PREGABALIN
     Dosage: 75 MG, TWO TIMES DAILY
     Route: 048
     Dates: start: 20170703, end: 2017
  4. HUMALOG [Concomitant]
     Active Substance: INSULIN LISPRO
     Indication: TYPE 2 DIABETES MELLITUS
     Dosage: UP TO 42 UNITS DAILY AT SLIDING SCALE BEFORE MEALS
  5. LISINOPRIL/HCTZ [Concomitant]
     Active Substance: HYDROCHLOROTHIAZIDE\LISINOPRIL
     Indication: TYPE 2 DIABETES MELLITUS
     Dosage: 1 DF, DAILY
     Route: 048
  6. LYRICA [Suspect]
     Active Substance: PREGABALIN
     Dosage: 150 MG, DAILY (50 MG IN AM AND 100 MG AT NIGHT)
     Route: 048
     Dates: start: 20170308, end: 2017
  7. LANTUS [Concomitant]
     Active Substance: INSULIN GLARGINE
     Dosage: UP TO 40 UNITS, ONCE A DAY (NIGHTLY)
     Route: 058
  8. HUMALOG [Concomitant]
     Active Substance: INSULIN LISPRO
     Dosage: 16MG IN THE MORNING, AND THEN BEFORE MEALS 15MG^ OR 14 OR 12 WHATEVER MY BLOOD SUGARS
  9. PRAVASTATIN SODIUM. [Concomitant]
     Active Substance: PRAVASTATIN SODIUM
     Indication: BLOOD CHOLESTEROL ABNORMAL
     Dosage: 40 MG, ONCE A DAY
  10. METFORMIN [Concomitant]
     Active Substance: METFORMIN HYDROCHLORIDE
     Dosage: 1000 MG, TWICE A DAY
     Route: 048
  11. PRAVASTATIN. [Concomitant]
     Active Substance: PRAVASTATIN
     Indication: HYPERTENSION
  12. HUMALOG [Concomitant]
     Active Substance: INSULIN LISPRO
     Dosage: 3 MG, 2X/DAY (BEFORE MEAL 2 TIMES A DAY)
  13. METFORMIN [Concomitant]
     Active Substance: METFORMIN HYDROCHLORIDE
     Indication: TYPE 2 DIABETES MELLITUS
     Dosage: 500 MG, TWICE A DAY
  14. LYRICA [Suspect]
     Active Substance: PREGABALIN
     Indication: ARTHRALGIA
     Dosage: 75 MG, ONCE A DAY
     Route: 048
     Dates: start: 201702, end: 2017
  15. LYRICA [Suspect]
     Active Substance: PREGABALIN
     Dosage: UNK
     Dates: start: 2017, end: 2017
  16. HUMALOG [Concomitant]
     Active Substance: INSULIN LISPRO
     Dosage: 30-40 UNITS DIVIDED IN 3 DOSES, DAILY (30 TO 40 UNITS A DAY; SLIDING SCALE BEFORE MEALS)
     Route: 058
  17. LANTUS [Concomitant]
     Active Substance: INSULIN GLARGINE
     Indication: TYPE 2 DIABETES MELLITUS
     Dosage: 32 IU, ONCE DAILY (BEDTIME)
     Route: 058
  18. LANTUS [Concomitant]
     Active Substance: INSULIN GLARGINE
     Dosage: 36 MG, 1X/DAY (AT BED TIME)
  19. LYRICA [Suspect]
     Active Substance: PREGABALIN
     Indication: INTERVERTEBRAL DISC PROTRUSION
     Dosage: 200 MG, DAILY
     Dates: start: 2017, end: 2017
  20. ASPIRIN. [Concomitant]
     Active Substance: ASPIRIN
     Dosage: 81 MG, ONCE A DAY
     Route: 048
  21. LISINOPRIL/HCTZ [Concomitant]
     Active Substance: HYDROCHLOROTHIAZIDE\LISINOPRIL
     Indication: BLOOD PRESSURE MEASUREMENT
     Dosage: 1 DF, ONCE A DAY (MORNING)
  22. LYRICA [Suspect]
     Active Substance: PREGABALIN
     Indication: BACK PAIN
     Dosage: 75 MG, TWICE A DAY
     Dates: start: 201702, end: 201702
  23. GLIMEPIRIDE. [Concomitant]
     Active Substance: GLIMEPIRIDE
     Indication: TYPE 2 DIABETES MELLITUS
     Dosage: 4 MG, TWICE A DAY
     Route: 048

REACTIONS (12)
  - Amnesia [Unknown]
  - Hypersomnia [Not Recovered/Not Resolved]
  - Disorientation [Recovered/Resolved]
  - Therapeutic response unexpected [Recovered/Resolved]
  - Intentional product use issue [Unknown]
  - Balance disorder [Recovered/Resolved]
  - Headache [Not Recovered/Not Resolved]
  - Weight increased [Unknown]
  - Malaise [Unknown]
  - Pre-existing condition improved [Recovered/Resolved]
  - Drug effect incomplete [Unknown]
  - Fatigue [Recovered/Resolved]

NARRATIVE: CASE EVENT DATE: 2017
